FAERS Safety Report 7608656-7 (Version None)
Quarter: 2011Q3

REPORT INFORMATION
  Report Type: 
  Country: None (occurrence: None)
  Receive Date: 20110714
  Receipt Date: 20110708
  Transmission Date: 20111222
  Serious: Yes (Other)
  Sender: FDA-Public Use
  Company Number: US-B.I. PHARMACEUTICALS,INC./RIDGEFIELD-2011-BP-17443PF

PATIENT
  Sex: Male
  Weight: 63.04 kg

DRUGS (12)
  1. ADVAIR DISKUS 100/50 [Suspect]
     Dosage: 250/50MCG, TWICE A DAY
  2. LISINOPRIL [Concomitant]
     Dosage: 10 MG
  3. CRESTOR [Concomitant]
     Dosage: 20 MG
  4. RANEXA [Concomitant]
     Dosage: 1000 MG
  5. NIASPAN [Concomitant]
     Dosage: 500 MG
  6. LANOXIN [Concomitant]
     Indication: MYOCARDIAL INFARCTION
     Dosage: 0.125 MG
  7. ASPIRIN [Concomitant]
     Dosage: 81 MG
  8. PLAVIX [Concomitant]
     Dosage: 75 MG
  9. SPIRIVA [Suspect]
     Route: 055
  10. CHANTIX [Suspect]
     Indication: SMOKING CESSATION THERAPY
     Route: 048
     Dates: end: 20110101
  11. PROTONIX [Concomitant]
     Indication: HIATUS HERNIA
     Dosage: 40 MG
  12. SITAGLIPTIN PHOSPHATE [Concomitant]
     Dosage: 100 MG

REACTIONS (6)
  - GLAUCOMA [None]
  - ANGER [None]
  - BLOOD GLUCOSE INCREASED [None]
  - GRIEF REACTION [None]
  - VITAMIN D DECREASED [None]
  - STRESS [None]
